FAERS Safety Report 19327318 (Version 3)
Quarter: 2021Q3

REPORT INFORMATION
  Report Type: Report from Study
  Country: CN (occurrence: CN)
  Receive Date: 20210528
  Receipt Date: 20210819
  Transmission Date: 20211014
  Serious: Yes (Disabling, Other)
  Sender: FDA-Public Use
  Company Number: CN-BRISTOL-MYERS SQUIBB COMPANY-BMS-2021-050330

PATIENT
  Age: 71 Year
  Sex: Male

DRUGS (2)
  1. NIVOLUMAB [Suspect]
     Active Substance: NIVOLUMAB
     Dosage: 180 MILLIGRAM, Q2WK
     Route: 041
     Dates: start: 20210611
  2. NIVOLUMAB [Suspect]
     Active Substance: NIVOLUMAB
     Indication: NON-SMALL CELL LUNG CANCER
     Dosage: 180 MILLIGRAM, Q2WK
     Route: 041
     Dates: start: 20210312

REACTIONS (2)
  - Cerebral infarction [Unknown]
  - Asthma [Unknown]

NARRATIVE: CASE EVENT DATE: 202105
